FAERS Safety Report 6580198-X (Version None)
Quarter: 2010Q1

REPORT INFORMATION
  Report Type: 
  Country: None (occurrence: None)
  Receive Date: 20100203
  Receipt Date: 20100120
  Transmission Date: 20100710
  Serious: Yes (Hospitalization)
  Sender: FDA-Public Use
  Company Number: 1000011606

PATIENT
  Age: 60 Year
  Sex: Female

DRUGS (3)
  1. MEMANTINE HCL [Suspect]
     Indication: DEMENTIA ALZHEIMER'S TYPE
     Dosage: 20 MG (10 MG,2 IN 1 D),ORAL
     Route: 048
     Dates: start: 20070101, end: 20090101
  2. CALCIMAX-D3 [Concomitant]
  3. IBANDRONIX ACID [Concomitant]

REACTIONS (5)
  - CONDITION AGGRAVATED [None]
  - CONVULSION [None]
  - DELIRIUM [None]
  - DEMENTIA ALZHEIMER'S TYPE [None]
  - DYSENTERY [None]
